FAERS Safety Report 6284587-2 (Version None)
Quarter: 2009Q3

REPORT INFORMATION
  Report Type: 
  Country: None (occurrence: None)
  Receive Date: 20090727
  Receipt Date: 20090627
  Transmission Date: 20100115
  Serious: Yes (Death, Hospitalization)
  Sender: FDA-Public Use
  Company Number: IT-ALEXION-A200900540

PATIENT

DRUGS (3)
  1. SOLIRIS [Suspect]
     Indication: PAROXYSMAL NOCTURNAL HAEMOGLOBINURIA
     Dosage: INITIATION PHASE DURING CLINICAL TRIAL
     Route: 042
  2. SOLIRIS [Suspect]
     Dosage: 900 MG, Q2W
     Route: 042
     Dates: end: 20090609
  3. MEROPENEM [Suspect]

REACTIONS (3)
  - CARDIAC FAILURE ACUTE [None]
  - DEATH [None]
  - RESPIRATORY FAILURE [None]
